FAERS Safety Report 5756003-8 (Version None)
Quarter: 2008Q2

REPORT INFORMATION
  Report Type: 
  Country: None (occurrence: None)
  Receive Date: 20080602
  Receipt Date: 20080404
  Transmission Date: 20081010
  Serious: No
  Sender: FDA-Public Use
  Company Number: US-ABBOTT-08P-163-0445798-00

PATIENT

DRUGS (3)
  1. ZEMPLAR [Suspect]
     Indication: RENAL FAILURE
     Route: 048
  2. ZEMPLAR [Suspect]
     Route: 050
  3. ZEMPLAR INJECTION, AMPULE [Suspect]
     Indication: RENAL FAILURE
     Route: 042

REACTIONS (1)
  - PRURITUS [None]
